FAERS Safety Report 5445850-8 (Version None)
Quarter: 2007Q3

REPORT INFORMATION
  Report Type: 
  Country: None (occurrence: None)
  Receive Date: 20070904
  Receipt Date: 20070821
  Transmission Date: 20080115
  Serious: Yes (Other)
  Sender: FDA-Public Use
  Company Number: 2007JP003986

PATIENT
  Age: 59 Year
  Sex: Female

DRUGS (2)
  1. PROGRAF [Suspect]
     Indication: CORD BLOOD TRANSPLANT THERAPY
     Dosage: 0.02 MG/KG/D
  2. METHOTREXATE [Concomitant]

REACTIONS (9)
  - ANOREXIA [None]
  - CONVULSION [None]
  - DIARRHOEA [None]
  - DRUG TOXICITY [None]
  - ENCEPHALITIS HERPES [None]
  - FEBRILE NEUTROPENIA [None]
  - FUNGAL INFECTION [None]
  - HUMAN HERPESVIRUS 6 INFECTION [None]
  - LUNG NEOPLASM [None]
